APPROVED DRUG PRODUCT: ORPHENADRINE CITRATE
Active Ingredient: ORPHENADRINE CITRATE
Strength: 30MG/ML
Dosage Form/Route: INJECTABLE;INJECTION
Application: A084779 | Product #001 | TE Code: AP
Applicant: WATSON LABORATORIES INC
Approved: Mar 15, 1982 | RLD: No | RS: No | Type: RX